FAERS Safety Report 5224899-4 (Version None)
Quarter: 2007Q1

REPORT INFORMATION
  Report Type: 
  Country: None (occurrence: None)
  Receive Date: 20070131
  Receipt Date: 20070117
  Transmission Date: 20070707
  Serious: Yes (Death)
  Sender: FDA-Public Use
  Company Number: US-AMGEN-STX205934

PATIENT
  Sex: Male

DRUGS (3)
  1. ENBREL [Suspect]
     Indication: PSORIATIC ARTHROPATHY
     Route: 065
     Dates: start: 20040209, end: 20060501
  2. ENBREL [Suspect]
     Dates: start: 20051201, end: 20060501
  3. HUMIRA [Concomitant]
     Route: 065
     Dates: start: 20060501

REACTIONS (1)
  - MYOCARDIAL INFARCTION [None]
